FAERS Safety Report 5325181-7 (Version None)
Quarter: 2007Q2

REPORT INFORMATION
  Report Type: 
  Country: None (occurrence: None)
  Receive Date: 20070515
  Receipt Date: 20070511
  Transmission Date: 20071010
  Serious: Yes (Other)
  Sender: FDA-Public Use
  Company Number: B0466164A

PATIENT
  Age: 75 Year
  Sex: Female
  Weight: 56.1 kg

DRUGS (9)
  1. ZOVIRAX [Suspect]
     Indication: HERPES ZOSTER
     Dosage: 500MG PER DAY
     Route: 042
     Dates: start: 20070330, end: 20070405
  2. HUMALOG [Suspect]
     Indication: DIABETES MELLITUS
     Dosage: 4IU THREE TIMES PER DAY
     Route: 058
  3. ACTOS [Suspect]
     Indication: DIABETES MELLITUS
     Dosage: 30MG PER DAY
     Route: 048
     Dates: start: 20050101
  4. AMARYL [Suspect]
     Indication: DIABETES MELLITUS
     Dosage: 1MG PER DAY
     Route: 048
     Dates: start: 20050101
  5. PREDONINE [Concomitant]
     Indication: DRUG USE FOR UNKNOWN INDICATION
     Route: 065
  6. NEUROTROPIN [Concomitant]
     Indication: DRUG USE FOR UNKNOWN INDICATION
     Route: 065
  7. LOXONIN [Concomitant]
     Indication: DRUG USE FOR UNKNOWN INDICATION
     Route: 065
  8. MUCOSTA [Concomitant]
     Indication: DRUG USE FOR UNKNOWN INDICATION
     Route: 048
  9. GASTER [Concomitant]
     Indication: DRUG USE FOR UNKNOWN INDICATION
     Route: 065

REACTIONS (2)
  - DEPRESSED LEVEL OF CONSCIOUSNESS [None]
  - HYPOGLYCAEMIA [None]
